FAERS Safety Report 9235564 (Version 1)
Quarter: 2013Q1

REPORT INFORMATION
  Report Type: Spontaneous
  Country: US (occurrence: None)
  Receive Date: 20121031
  Receipt Date: 20121031
  Transmission Date: 20140127
  Serious: No
  Sender: FDA-Public Use
  Company Number: PHEH2012US012021

PATIENT
  Age: 63 Year
  Sex: 0
  Weight: 77.1 kg

DRUGS (3)
  1. GILENYA [Suspect]
     Indication: MULTIPLE SCLEROSIS
     Route: 048
     Dates: start: 20110205
  2. EFFEXOR ( VENLAFAXINE HYDROCHLORIDE) [Concomitant]
  3. LEXAPRO ( ESCITALOPRAM OXALATE) [Concomitant]

REACTIONS (2)
  - Diplopia [None]
  - Fatigue [None]
